FAERS Safety Report 13177166 (Version 1)
Quarter: 2017Q1

REPORT INFORMATION
  Report Type: Report from Study
  Country: US (occurrence: US)
  Receive Date: 20170201
  Receipt Date: 20170201
  Transmission Date: 20170428
  Serious: No
  Sender: FDA-Public Use
  Company Number: US-EXELIXIS-CABO-16007239

PATIENT
  Sex: Male

DRUGS (23)
  1. LOSARTAN. [Concomitant]
     Active Substance: LOSARTAN
  2. CHOLESTYRAMINE. [Concomitant]
     Active Substance: CHOLESTYRAMINE
  3. COMETRIQ [Suspect]
     Active Substance: CABOZANTINIB S-MALATE
     Dosage: 60 MG, QD
     Route: 048
     Dates: start: 20160425, end: 20161107
  4. ACETAMINOPHEN. [Concomitant]
     Active Substance: ACETAMINOPHEN
  5. GABAPENTIN. [Concomitant]
     Active Substance: GABAPENTIN
  6. VITAMIN C [Concomitant]
     Active Substance: ASCORBIC ACID
  7. REPAGLINIDE. [Concomitant]
     Active Substance: REPAGLINIDE
  8. DEXILANT [Concomitant]
     Active Substance: DEXLANSOPRAZOLE
  9. LYRICA [Concomitant]
     Active Substance: PREGABALIN
  10. PAROXETINE. [Concomitant]
     Active Substance: PAROXETINE
  11. DIPHENHYDRAMINE. [Concomitant]
     Active Substance: DIPHENHYDRAMINE
  12. ASPIRIN. [Concomitant]
     Active Substance: ASPIRIN
  13. ATENOLOL. [Concomitant]
     Active Substance: ATENOLOL
  14. MUCINEX [Concomitant]
     Active Substance: GUAIFENESIN
  15. TRAMADOL. [Concomitant]
     Active Substance: TRAMADOL
  16. ONDANSETRON [Concomitant]
     Active Substance: ONDANSETRON
  17. BRINZOLAMIDE [Concomitant]
     Active Substance: BRINZOLAMIDE
  18. COMETRIQ [Suspect]
     Active Substance: CABOZANTINIB S-MALATE
     Indication: RENAL CANCER
     Dosage: 60 MG, QD
     Route: 048
     Dates: start: 20151126, end: 201601
  19. HCTZ [Concomitant]
     Active Substance: HYDROCHLOROTHIAZIDE
  20. XALATAN OPHTH [Concomitant]
  21. METFORMIN [Concomitant]
     Active Substance: METFORMIN HYDROCHLORIDE
  22. GAVISCON [Concomitant]
     Active Substance: ALUMINUM HYDROXIDE\MAGNESIUM CARBONATE
  23. LINAGLIPTIN [Concomitant]
     Active Substance: LINAGLIPTIN

REACTIONS (4)
  - Oesophagogastroduodenoscopy [Unknown]
  - Colonoscopy [Unknown]
  - Off label use [Unknown]
  - Malignant neoplasm progression [Unknown]
